FAERS Safety Report 9325992 (Version 1)
Quarter: 2013Q2

REPORT INFORMATION
  Report Type: Spontaneous
  Country: US (occurrence: None)
  Receive Date: 20130603
  Receipt Date: 20130603
  Transmission Date: 20140414
  Serious: Yes (Other)
  Sender: FDA-Public Use
  Company Number: None

PATIENT
  Age: 72 Year
  Sex: 0

DRUGS (3)
  1. METFORMIN [Suspect]
  2. LIPITOR [Concomitant]
  3. QUINIPRIL [Concomitant]

REACTIONS (1)
  - Urine odour abnormal [None]
